FAERS Safety Report 4917400-3 (Version None)
Quarter: 2006Q1

REPORT INFORMATION
  Report Type: 
  Country: None (occurrence: None)
  Receive Date: 20060221
  Receipt Date: 20060216
  Transmission Date: 20060701
  Serious: Yes (Hospitalization)
  Sender: FDA-Public Use
  Company Number: FRPFM-E-20060015

PATIENT
  Age: 64 Year
  Sex: Male

DRUGS (1)
  1. CIBLOR [Suspect]
     Indication: BRONCHITIS
     Dosage: 3G PER DAY
     Route: 048
     Dates: start: 20060117, end: 20060119

REACTIONS (2)
  - MALAISE [None]
  - ORTHOSTATIC HYPOTENSION [None]
